FAERS Safety Report 9223281 (Version 3)
Quarter: 2013Q2

REPORT INFORMATION
  Report Type: Report from Study
  Country: DE (occurrence: DE)
  Receive Date: 20130410
  Receipt Date: 20130502
  Transmission Date: 20140414
  Serious: Yes (Hospitalization)
  Sender: FDA-Public Use
  Company Number: DE-BAXTER-2013BAX012910

PATIENT
  Sex: Male

DRUGS (22)
  1. PREDNISONE [Suspect]
     Route: 048
     Dates: start: 20130403
  2. PREDNISONE [Suspect]
     Route: 048
     Dates: start: 201304
  3. PREDNISONE [Suspect]
     Route: 048
     Dates: start: 201304, end: 20130414
  4. PEGFILGRASTIM [Suspect]
     Indication: B-CELL LYMPHOMA
     Route: 058
     Dates: start: 20130315, end: 20130315
  5. PEGFILGRASTIM [Suspect]
     Route: 058
     Dates: start: 20130406, end: 20130406
  6. ACICLOVIR [Concomitant]
     Indication: INFECTION PROPHYLAXIS
     Route: 048
  7. SULFAMETHOXAZOLE/TRIMETHOPRIM [Concomitant]
     Indication: INFECTION PROPHYLAXIS
     Route: 048
  8. LEVOFLOXACIN [Concomitant]
     Indication: INFECTION PROPHYLAXIS
     Route: 048
     Dates: start: 20130317
  9. LEVOFLOXACIN [Concomitant]
     Route: 048
     Dates: start: 20130412
  10. AMPHOTERICIN B [Concomitant]
     Indication: INFECTION PROPHYLAXIS
     Dosage: 1 PIPETTE
     Route: 048
     Dates: start: 20130318, end: 20130319
  11. MIRTAZAPINE [Concomitant]
     Indication: DEPRESSION
     Route: 048
  12. LEVOTHYROXINE SODIUM [Concomitant]
     Indication: HYPOTHYROIDISM
     Route: 048
  13. PANTOPRAZOLE SODIUM [Concomitant]
     Indication: PROPHYLAXIS AGAINST GASTROINTESTINAL ULCER
     Route: 048
  14. ENDOXAN 1G [Suspect]
     Indication: B-CELL LYMPHOMA
     Route: 042
     Dates: start: 20130312, end: 20130312
  15. ENDOXAN 1G [Suspect]
     Route: 042
     Dates: start: 20130403, end: 20130403
  16. RITUXIMAB [Suspect]
     Indication: B-CELL LYMPHOMA
     Route: 042
     Dates: start: 20130311, end: 20130311
  17. RITUXIMAB [Suspect]
     Route: 042
     Dates: start: 20130402, end: 20130402
  18. DOXORUBICIN [Suspect]
     Indication: B-CELL LYMPHOMA
     Route: 042
     Dates: start: 20130312, end: 20130312
  19. DOXORUBICIN [Suspect]
     Route: 042
     Dates: start: 20130403, end: 20130403
  20. VINCRISTINE [Suspect]
     Indication: B-CELL LYMPHOMA
     Route: 042
     Dates: start: 20130312, end: 20130312
  21. VINCRISTINE [Suspect]
     Route: 042
     Dates: start: 20130403, end: 20130403
  22. PREDNISONE [Suspect]
     Indication: B-CELL LYMPHOMA
     Dosage: 100MG, D6-D8: 50 MG, D8-D11: 25MG
     Route: 065
     Dates: start: 20130313, end: 20130317

REACTIONS (3)
  - Febrile neutropenia [Recovered/Resolved]
  - Pneumothorax [Recovered/Resolved]
  - Neutropenia [Not Recovered/Not Resolved]
